FAERS Safety Report 23074977 (Version 1)
Quarter: 2023Q4

REPORT INFORMATION
  Report Type: Spontaneous
  Country: US (occurrence: None)
  Receive Date: 20231017
  Receipt Date: 20231017
  Transmission Date: 20240109
  Serious: Yes (Death)
  Sender: FDA-Public Use
  Company Number: None

PATIENT
  Sex: Male

DRUGS (1)
  1. GAMUNEX-C [Suspect]
     Active Substance: HUMAN IMMUNOGLOBULIN G
     Indication: Chronic lymphocytic leukaemia
     Dosage: OTHER STRENGTH : 10GM/100ML;?OTHER QUANTITY : 10GM/100ML;?FREQUENCY : MONTHLY;?
     Route: 042
     Dates: start: 20230328, end: 202310

REACTIONS (1)
  - Death [None]
